FAERS Safety Report 4456246-X (Version None)
Quarter: 2004Q3

REPORT INFORMATION
  Report Type: 
  Country: None (occurrence: None)
  Receive Date: 20040902
  Receipt Date: 20040622
  Transmission Date: 20050211
  Serious: No
  Sender: FDA-Public Use
  Company Number: 200324864BWH

PATIENT
  Age: 60 Year
  Sex: Male

DRUGS (9)
  1. LEVITRA [Suspect]
     Indication: ERECTILE DYSFUNCTION
     Dosage: 10 MG, ONCE, ORAL
     Route: 048
     Dates: start: 20030928
  2. NORVASC [Concomitant]
  3. IMDUR [Concomitant]
  4. ATENOLOL [Concomitant]
  5. AVANDIA [Concomitant]
  6. MONOPRIL [Concomitant]
  7. TRICOR [Concomitant]
  8. ZOCOR [Concomitant]
  9. METFORMIN [Concomitant]

REACTIONS (3)
  - ABDOMINAL PAIN UPPER [None]
  - HEADACHE [None]
  - HEART RATE INCREASED [None]
